FAERS Safety Report 9249282 (Version 1)
Quarter: 2013Q2

REPORT INFORMATION
  Report Type: Spontaneous
  Country: US (occurrence: US)
  Receive Date: 20130423
  Receipt Date: 20130423
  Transmission Date: 20140414
  Serious: No
  Sender: FDA-Public Use
  Company Number: US-PFIZER INC-2013125362

PATIENT
  Age: 60 Year
  Sex: Female
  Weight: 79.82 kg

DRUGS (3)
  1. AMLODIPINE BESILATE [Suspect]
     Indication: BLOOD PRESSURE ABNORMAL
     Dosage: 5 MG, 1X/DAY
     Dates: start: 201304, end: 20130418
  2. OMEPRAZOLE [Concomitant]
     Indication: GASTROOESOPHAGEAL REFLUX DISEASE
     Dosage: 20 MG, AS NEEDED
  3. ACETYLSALICYLIC ACID [Concomitant]
     Indication: PAIN
     Dosage: 325 MG, AS NEEDED

REACTIONS (3)
  - Dyspnoea [Recovering/Resolving]
  - Abdominal discomfort [Recovering/Resolving]
  - Somnolence [Recovering/Resolving]
